FAERS Safety Report 10219364 (Version 5)
Quarter: 2014Q4

REPORT INFORMATION
  Report Type: Report from Study
  Country: US (occurrence: US)
  Receive Date: 20140605
  Receipt Date: 20141010
  Transmission Date: 20150528
  Serious: Yes (Hospitalization)
  Sender: FDA-Public Use
  Company Number: US-ACTELION-A-US2014-099664

PATIENT
  Age: 72 Year
  Sex: Female

DRUGS (5)
  1. METOPROLOL [Suspect]
     Active Substance: METOPROLOL
     Indication: HYPERTENSION
     Dosage: 100 MG, BID
     Route: 048
  2. MACITENTAN [Suspect]
     Active Substance: MACITENTAN
     Indication: PULMONARY ARTERIAL HYPERTENSION
     Dosage: 10 MG, QD
     Route: 048
     Dates: start: 20140128
  3. SPIRONOLACTONE. [Suspect]
     Active Substance: SPIRONOLACTONE
     Indication: HYPERTENSION
     Dosage: 50 MG, BID
     Route: 048
  4. WARFARIN [Concomitant]
     Active Substance: WARFARIN
  5. MACITENTAN [Suspect]
     Active Substance: MACITENTAN
     Dosage: 10 MG, QD
     Route: 048
     Dates: start: 20140220

REACTIONS (11)
  - Diabetes mellitus [Recovering/Resolving]
  - Blood creatinine increased [Recovering/Resolving]
  - Hepatic failure [Recovering/Resolving]
  - Hyponatraemia [Unknown]
  - Hypothyroidism [Recovering/Resolving]
  - Aspartate aminotransferase increased [Recovered/Resolved]
  - Urinary tract infection [Unknown]
  - Urogenital disorder [Recovering/Resolving]
  - Dementia [Recovering/Resolving]
  - Acute kidney injury [Recovering/Resolving]
  - Fluid overload [Recovering/Resolving]

NARRATIVE: CASE EVENT DATE: 20140502
